FAERS Safety Report 6029520-3 (Version None)
Quarter: 2009Q1

REPORT INFORMATION
  Report Type: 
  Country: None (occurrence: None)
  Receive Date: 20090107
  Receipt Date: 20071204
  Transmission Date: 20090719
  Serious: No
  Sender: FDA-Public Use
  Company Number: US-BAYER-200714235BWH

PATIENT
  Age: 59 Year
  Sex: Female
  Weight: 88 kg

DRUGS (31)
  1. SORAFENIB (STUDY MED NOT GIVEN) [Suspect]
     Indication: OVARIAN CANCER
  2. CARBOPLATIN [Suspect]
     Indication: OVARIAN CANCER
     Route: 042
     Dates: start: 20070712, end: 20070712
  3. CARBOPLATIN [Suspect]
     Route: 042
     Dates: start: 20070614, end: 20070614
  4. CARBOPLATIN [Suspect]
     Route: 042
     Dates: start: 20070524, end: 20070524
  5. CARBOPLATIN [Suspect]
     Route: 042
     Dates: start: 20070809, end: 20070809
  6. CARBOPLATIN [Suspect]
     Route: 042
     Dates: start: 20070913, end: 20070913
  7. TAXOL [Suspect]
     Indication: OVARIAN CANCER
     Route: 042
     Dates: start: 20070913, end: 20070913
  8. TAXOL [Suspect]
     Route: 042
     Dates: start: 20070809, end: 20070809
  9. TAXOL [Suspect]
     Route: 042
     Dates: start: 20070712, end: 20070712
  10. TAXOL [Suspect]
     Route: 042
     Dates: start: 20070614, end: 20070614
  11. TAXOL [Suspect]
     Route: 042
     Dates: start: 20070524, end: 20070524
  12. EFFEXOR XR [Concomitant]
     Indication: DEPRESSION
  13. GLUCOPHAGE [Concomitant]
     Indication: DIABETES MELLITUS
  14. ACTONEL [Concomitant]
     Indication: OSTEOPOROSIS
  15. ACTONEL [Concomitant]
  16. SINGULAIR [Concomitant]
     Indication: ASTHMA
     Dosage: TOTAL DAILY DOSE: 10 MG
  17. TRAZODONE HCL [Concomitant]
     Indication: INSOMNIA
  18. LASIX [Concomitant]
     Indication: OEDEMA
     Dosage: TOTAL DAILY DOSE: 20 MG
  19. SYNTHROID [Concomitant]
     Indication: HYPOTHYROIDISM
     Dosage: TOTAL DAILY DOSE: 175 ?G
  20. VYTORIN [Concomitant]
     Indication: HYPERLIPIDAEMIA
     Dosage: AS USED: 10/20 MG
  21. ZOFRAN [Concomitant]
  22. COMPAZINE [Concomitant]
  23. VALIUM [Concomitant]
     Indication: ANXIETY
  24. COMBIVENT [Concomitant]
     Indication: ASTHMA
  25. NORVASC [Concomitant]
     Indication: HYPERTENSION
     Dosage: TOTAL DAILY DOSE: 10 MG
  26. ADVAIR DISKUS 250/50 [Concomitant]
     Indication: ASTHMA
  27. VICODIN [Concomitant]
     Indication: PAIN
  28. POTASSIUM CHLORIDE [Concomitant]
     Dosage: TOTAL DAILY DOSE: 10 MEQ
  29. DESYREL [Concomitant]
     Indication: SLEEP DISORDER
     Dosage: TOTAL DAILY DOSE: 100 MG
  30. AMBIEN [Concomitant]
     Indication: SLEEP DISORDER
     Dosage: TOTAL DAILY DOSE: 5 MG
  31. FLUZONE [Concomitant]
     Indication: INFLUENZA IMMUNISATION
     Dates: start: 20071014, end: 20071014

REACTIONS (7)
  - ANAEMIA [None]
  - ASTHENIA [None]
  - ELECTROLYTE IMBALANCE [None]
  - FAILURE TO THRIVE [None]
  - HYPOTENSION [None]
  - PANCYTOPENIA [None]
  - THROMBOCYTOPENIA [None]
